FAERS Safety Report 10345070 (Version 1)
Quarter: 2014Q3

REPORT INFORMATION
  Report Type: Spontaneous
  Country: US (occurrence: None)
  Receive Date: 20140725
  Receipt Date: 20140725
  Transmission Date: 20150326
  Serious: Yes (Life-Threatening, Hospitalization)
  Sender: FDA-Public Use
  Company Number: None

PATIENT
  Age: 76 Year
  Sex: Female
  Weight: 72.58 kg

DRUGS (18)
  1. DEPAKOTE [Concomitant]
     Active Substance: DIVALPROEX SODIUM
  2. ALLEGRA [Concomitant]
     Active Substance: FEXOFENADINE HYDROCHLORIDE
  3. CRESTOR [Concomitant]
     Active Substance: ROSUVASTATIN CALCIUM
  4. PREMARIN [Concomitant]
     Active Substance: ESTROGENS, CONJUGATED
  5. MYRBETRIQ [Concomitant]
     Active Substance: MIRABEGRON
  6. IBUPROFEN. [Concomitant]
     Active Substance: IBUPROFEN
  7. CELEBREX [Concomitant]
     Active Substance: CELECOXIB
  8. MONOCYLINE [Concomitant]
  9. SINGULAIR [Suspect]
     Active Substance: MONTELUKAST SODIUM
  10. LISNOPRIL 15 MG [Suspect]
     Active Substance: LISINOPRIL
     Indication: ASTHMA
     Dates: start: 20110813, end: 20120827
  11. METOPROLOL [Concomitant]
     Active Substance: METOPROLOL
  12. VYTORIN [Concomitant]
     Active Substance: EZETIMIBE\SIMVASTATIN
  13. BISOPROL FUMERATE [Suspect]
     Active Substance: BISOPROLOL FUMARATE
  14. QUINIPRIL [Concomitant]
  15. CARVEDILOL 12.5 MG [Suspect]
     Active Substance: CARVEDILOL
     Indication: HYPERTENSION
     Dates: start: 20110105, end: 20110514
  16. ULTRAM [Concomitant]
     Active Substance: TRAMADOL HYDROCHLORIDE
  17. PTEMPROP [Concomitant]
  18. LIPITOR [Concomitant]
     Active Substance: ATORVASTATIN CALCIUM

REACTIONS (10)
  - Vision blurred [None]
  - Loss of consciousness [None]
  - Emotional disorder [None]
  - Pain [None]
  - Disorientation [None]
  - Drug hypersensitivity [None]
  - Road traffic accident [None]
  - Dyspnoea [None]
  - Economic problem [None]
  - Confusional state [None]

NARRATIVE: CASE EVENT DATE: 20110511
